FAERS Safety Report 8935243 (Version 1)
Quarter: 2012Q4

REPORT INFORMATION
  Report Type: 
  Country: DE (occurrence: DE)
  Receive Date: 20121129
  Receipt Date: 20121129
  Transmission Date: 20130627
  Serious: Yes (Death, Life-Threatening, Other)
  Sender: FDA-Public Use
  Company Number: GXKR2012DE003623

PATIENT
  Age: 51 Year
  Sex: Male

DRUGS (5)
  1. ZOPICLONE [Suspect]
  2. ALPRAZOLAM [Suspect]
     Dosage: 5 mg, UNK
     Route: 048
     Dates: start: 20120620
  3. TAVOR (LORAZEPAM) [Suspect]
     Dosage: 1 mg, UNK
     Route: 048
     Dates: start: 20120619
  4. TAVOR (LORAZEPAM) [Suspect]
     Dosage: 1 mg, UNK
     Route: 048
     Dates: start: 20120620
  5. ALCOHOL [Interacting]

REACTIONS (12)
  - Pulmonary embolism [Fatal]
  - Death [Fatal]
  - Respiratory arrest [Fatal]
  - Hyperventilation [Fatal]
  - Hypotension [Fatal]
  - Tachycardia [Fatal]
  - Aggression [Unknown]
  - Agitation [Unknown]
  - Cold sweat [Unknown]
  - Tremor [Unknown]
  - Withdrawal syndrome [Unknown]
  - Poisoning [Unknown]
